FAERS Safety Report 7788260-0 (Version None)
Quarter: 2011Q3

REPORT INFORMATION
  Report Type: 
  Country: None (occurrence: None)
  Receive Date: 20110930
  Receipt Date: 20110919
  Transmission Date: 20111222
  Serious: Yes (Hospitalization, Other)
  Sender: FDA-Public Use
  Company Number: US-ELI_LILLY_AND_COMPANY-US201104006798

PATIENT
  Sex: Female
  Weight: 60 kg

DRUGS (15)
  1. FORTEO [Suspect]
     Dosage: 20 UG, QD
     Route: 058
  2. CENTRUM [Concomitant]
  3. FORTEO [Suspect]
     Dosage: 20 UG, QD
     Route: 058
  4. XALATAN [Concomitant]
  5. VITAMIN D [Concomitant]
  6. CALCIUM CARBONATE [Concomitant]
  7. LOTREL [Concomitant]
     Dosage: UNK, QD
  8. ASPIRIN [Concomitant]
  9. FOLIC ACID [Concomitant]
  10. LOZAL [Concomitant]
  11. PREDNISONE [Concomitant]
     Dosage: 5 MG, QD
  12. METHOTREXATE [Concomitant]
     Dosage: UNK, WEEKLY (1/W)
  13. NORCO [Concomitant]
     Indication: PAIN
  14. FORTEO [Suspect]
     Indication: OSTEOPOROSIS
     Dosage: 20 UG, QD
     Route: 058
     Dates: start: 20100114
  15. FISH OIL [Concomitant]

REACTIONS (5)
  - HYPOTENSION [None]
  - ARTHRALGIA [None]
  - OEDEMA [None]
  - HEART RATE DECREASED [None]
  - CONSTIPATION [None]
